FAERS Safety Report 12519395 (Version 1)
Quarter: 2016Q2

REPORT INFORMATION
  Report Type: Spontaneous
  Country: IT (occurrence: IT)
  Receive Date: 20160630
  Receipt Date: 20160630
  Transmission Date: 20160815
  Serious: Yes (Other)
  Sender: FDA-Public Use
  Company Number: IT-JNJFOC-20160625982

PATIENT
  Age: 11 Year
  Sex: Female

DRUGS (4)
  1. RITALIN [Concomitant]
     Active Substance: METHYLPHENIDATE HYDROCHLORIDE
     Indication: ATTENTION DEFICIT/HYPERACTIVITY DISORDER
     Route: 048
     Dates: start: 20110706, end: 20160623
  2. RISPERDAL [Suspect]
     Active Substance: RISPERIDONE
     Indication: ABNORMAL BEHAVIOUR
     Route: 048
     Dates: start: 20160310, end: 2016
  3. RISPERDAL [Suspect]
     Active Substance: RISPERIDONE
     Indication: ABNORMAL BEHAVIOUR
     Dosage: REDUCED DOSE
     Route: 048
     Dates: start: 2016, end: 20160526
  4. DEPAKIN [Concomitant]
     Active Substance: VALPROATE SODIUM
     Indication: ABNORMAL BEHAVIOUR
     Route: 048
     Dates: start: 20120618, end: 20160623

REACTIONS (6)
  - Psychomotor retardation [Unknown]
  - Somnolence [Unknown]
  - Off label use [Unknown]
  - Sluggishness [Unknown]
  - Product use issue [Unknown]
  - Apathy [Unknown]

NARRATIVE: CASE EVENT DATE: 20160310
